FAERS Safety Report 7022058-6 (Version None)
Quarter: 2010Q3

REPORT INFORMATION
  Report Type: 
  Country: None (occurrence: None)
  Receive Date: 20100930
  Receipt Date: 20100922
  Transmission Date: 20110219
  Serious: Yes (Hospitalization)
  Sender: FDA-Public Use
  Company Number: BE-JNJFOC-20100907042

PATIENT
  Age: 49 Year
  Sex: Female

DRUGS (2)
  1. TAVANIC [Suspect]
     Indication: PYELONEPHRITIS
     Route: 048
  2. PENICILLIN [Concomitant]
     Route: 065

REACTIONS (2)
  - ACUTE FEBRILE NEUTROPHILIC DERMATOSIS [None]
  - DERMATITIS ALLERGIC [None]
